FAERS Safety Report 9799601 (Version 1)
Quarter: 2014Q1

REPORT INFORMATION
  Report Type: Spontaneous
  Country: US (occurrence: None)
  Receive Date: 20140103
  Receipt Date: 20140103
  Transmission Date: 20141002
  Serious: No
  Sender: FDA-Public Use
  Company Number: None

PATIENT
  Age: 86 Year
  Sex: Male

DRUGS (1)
  1. ZYTIGA 250 MG JANSSEN BIOTECH [Suspect]
     Indication: MALIGNANT NEOPLASM PROGRESSION
     Route: 048
     Dates: start: 201210, end: 201307

REACTIONS (2)
  - Dementia [None]
  - General physical health deterioration [None]
